FAERS Safety Report 8285865-8 (Version None)
Quarter: 2012Q2

REPORT INFORMATION
  Report Type: 
  Country: None (occurrence: None)
  Receive Date: 20120413
  Receipt Date: 20120405
  Transmission Date: 20120825
  Serious: Yes (Hospitalization)
  Sender: FDA-Public Use
  Company Number: US-ELI_LILLY_AND_COMPANY-US201204002497

PATIENT
  Sex: Female

DRUGS (12)
  1. DILTIAZEM HCL [Concomitant]
     Dosage: 120 MG, BID
  2. BENADRYL [Concomitant]
     Dosage: 25 MG, PRN
  3. ATENOLOL [Concomitant]
     Dosage: 25 MG, BID
  4. CRESTOR [Concomitant]
     Dosage: 5 DF, QD
  5. CITRACAL + D [Concomitant]
     Dosage: UNK, QD
  6. MULTI-VITAMINS [Concomitant]
     Dosage: UNK, QD
  7. FORTEO [Suspect]
     Indication: OSTEOPOROSIS
     Dosage: 20 UG, QD
     Route: 065
     Dates: start: 20100628, end: 20101001
  8. LUCENTIS [Concomitant]
     Indication: AGE-RELATED MACULAR DEGENERATION
     Dosage: UNK, MONTHLY (1/M)
  9. FORTEO [Suspect]
     Dosage: 20 UG, QD
     Route: 065
     Dates: start: 20101101
  10. FLOVENT [Concomitant]
     Dosage: 110 MG, QD
  11. FORTEO [Suspect]
     Dosage: 20 UG, QD
     Route: 065
     Dates: start: 20120320
  12. NASONEX [Concomitant]
     Dosage: 17 G, PRN

REACTIONS (5)
  - HEART RATE INCREASED [None]
  - ATRIAL FIBRILLATION [None]
  - BALANCE DISORDER [None]
  - UNDERDOSE [None]
  - DRUG DOSE OMISSION [None]
